FAERS Safety Report 9813420 (Version 3)
Quarter: 2014Q2

REPORT INFORMATION
  Report Type: Report from Study
  Country: US (occurrence: US)
  Receive Date: 20140113
  Receipt Date: 20140605
  Transmission Date: 20141212
  Serious: Yes (Death, Hospitalization, Other)
  Sender: FDA-Public Use
  Company Number: US-ACTELION-A-US2013-93234

PATIENT
  Age: 77 Year
  Sex: Female

DRUGS (5)
  1. TRACLEER [Suspect]
     Indication: PULMONARY ARTERIAL HYPERTENSION
     Route: 048
  2. LETAIRIS [Concomitant]
  3. REMODULIN [Concomitant]
  4. SILDENAFIL [Concomitant]
  5. COUMADIN [Concomitant]

REACTIONS (5)
  - Pulmonary arterial hypertension [Fatal]
  - Disease progression [Fatal]
  - Pneumonia [Unknown]
  - Dyspnoea [Unknown]
  - Pyrexia [Unknown]
